FAERS Safety Report 5850854-7 (Version None)
Quarter: 2008Q3

REPORT INFORMATION
  Report Type: 
  Country: None (occurrence: None)
  Receive Date: 20080818
  Receipt Date: 20080804
  Transmission Date: 20090109
  Serious: No
  Sender: FDA-Public Use
  Company Number: 003045

PATIENT
  Age: 84 Year
  Sex: Male

DRUGS (11)
  1. PLETAL [Suspect]
     Indication: CEREBRAL INFARCTION
     Dosage: 50 MG, BID
     Route: 048
     Dates: start: 20060825, end: 20080625
  2. DOPS (DROXIDOPA) [Concomitant]
  3. ASPIRIN [Concomitant]
  4. CEROCRAL (FENPRODIL TARTRATE) [Concomitant]
  5. METHYCOBAL (MECOBALAMIN) [Concomitant]
  6. AM (GLYCYRRHIZA POWDER COMBINED DRUG) [Concomitant]
  7. MUCOSAL-L (AMBROXOL HYDROCHLORIDE) [Concomitant]
  8. TANATRIL (IMIDAPRIL HYDROCHLORIDE) [Concomitant]
  9. MIZERON (ANTITUSSIVE COMBINED DRUG) SYRUP [Concomitant]
  10. CLE MAMALLET (CLEMASTINE FUMARATE) [Concomitant]
  11. MYCOSPOR (BIFONAZOLE) [Concomitant]

REACTIONS (1)
  - BLOOD CREATINE PHOSPHOKINASE INCREASED [None]
